FAERS Safety Report 9917264 (Version 1)
Quarter: 2014Q1

REPORT INFORMATION
  Report Type: Spontaneous
  Country: GB (occurrence: GB)
  Receive Date: 20140221
  Receipt Date: 20140221
  Transmission Date: 20141002
  Serious: Yes (Other)
  Sender: FDA-Public Use
  Company Number: GB-WATSON-2014-02945

PATIENT
  Age: 50 Year
  Sex: Male
  Weight: 83 kg

DRUGS (3)
  1. PROMETHAZINE (UNKNOWN) [Suspect]
     Indication: INSOMNIA
     Dosage: 25 MG, UNKNOWN
     Route: 048
     Dates: start: 20140124, end: 20140126
  2. DIAZEPAM [Concomitant]
     Indication: PRODUCT USED FOR UNKNOWN INDICATION
     Dosage: UNK
     Route: 065
  3. ZOPICLONE [Concomitant]
     Indication: PRODUCT USED FOR UNKNOWN INDICATION
     Dosage: 7.5 MG, UNKNOWN; 5 X 7.5 MG ZOPICLONE 1 WEEK PREVIOUS.
     Route: 065

REACTIONS (4)
  - Urticaria [Not Recovered/Not Resolved]
  - Chest discomfort [Recovered/Resolved]
  - Dyspepsia [Recovered/Resolved]
  - Dysphagia [Recovered/Resolved]
